FAERS Safety Report 21194809 (Version 7)
Quarter: 2022Q4

REPORT INFORMATION
  Report Type: Spontaneous
  Country: IN (occurrence: IN)
  Receive Date: 20220810
  Receipt Date: 20221209
  Transmission Date: 20230113
  Serious: Yes (Hospitalization, Other)
  Sender: FDA-Public Use
  Company Number: IN-PFIZER INC-202101437183

PATIENT
  Age: 48 Year
  Sex: Male

DRUGS (1)
  1. LORLATINIB [Suspect]
     Active Substance: LORLATINIB
     Dosage: 100 MG, 1X/DAY
     Route: 048
     Dates: start: 20180319

REACTIONS (8)
  - Blood cholesterol increased [Unknown]
  - Blood triglycerides increased [Unknown]
  - Haematuria [Unknown]
  - Malaise [Unknown]
  - Low density lipoprotein abnormal [Unknown]
  - Haemoglobin decreased [Unknown]
  - Weight decreased [Unknown]
  - Albumin globulin ratio increased [Unknown]

NARRATIVE: CASE EVENT DATE: 20211020
